FAERS Safety Report 18227818 (Version 1)
Quarter: 2020Q3

REPORT INFORMATION
  Report Type: Spontaneous
  Country: US (occurrence: US)
  Receive Date: 20200903
  Receipt Date: 20200903
  Transmission Date: 20201103
  Serious: No
  Sender: FDA-Public Use
  Company Number: US-MYLANLABS-2020M1073559

PATIENT
  Sex: Male
  Weight: 79 kg

DRUGS (1)
  1. CLONIDINE TRANSDERMAL SYSTEM [Suspect]
     Active Substance: CLONIDINE
     Indication: HYPERTENSION
     Dosage: 0.3 MILLIGRAM (AS PRESCRIBED)
     Route: 062
     Dates: start: 20200731

REACTIONS (2)
  - Product quality issue [Recovering/Resolving]
  - Product storage error [Recovering/Resolving]

NARRATIVE: CASE EVENT DATE: 2020
